FAERS Safety Report 25674489 (Version 1)
Quarter: 2025Q3

REPORT INFORMATION
  Report Type: Report from Study
  Country: US (occurrence: US)
  Receive Date: 20250813
  Receipt Date: 20250813
  Transmission Date: 20251021
  Serious: No
  Sender: SUNOVION
  Company Number: US-SUMITOMO PHARMA SWITZERLAND GMBH-2025SPA010105

PATIENT
  Age: 56 Year
  Sex: Male

DRUGS (7)
  1. ORGOVYX [Suspect]
     Active Substance: RELUGOLIX
     Indication: Product used for unknown indication
     Route: 048
     Dates: start: 20250731, end: 20250731
  2. ORGOVYX [Suspect]
     Active Substance: RELUGOLIX
     Route: 048
  3. DEXAMETHASONE [Concomitant]
     Active Substance: DEXAMETHASONE
  4. OXYCODONE [Concomitant]
     Active Substance: OXYCODONE
  5. PANTOPRAZOLE [Concomitant]
     Active Substance: PANTOPRAZOLE
  6. SULFAMETHOXAZOLE\TRIMETHOPRIM [Concomitant]
     Active Substance: SULFAMETHOXAZOLE\TRIMETHOPRIM
  7. XTANDI [Concomitant]
     Active Substance: ENZALUTAMIDE

REACTIONS (5)
  - Muscle spasms [Unknown]
  - Pain [Unknown]
  - Hunger [Unknown]
  - Middle insomnia [Unknown]
  - Fatigue [Unknown]
